FAERS Safety Report 8870044 (Version 3)
Quarter: 2014Q1

REPORT INFORMATION
  Report Type: Spontaneous
  Country: US (occurrence: None)
  Receive Date: 20120426
  Receipt Date: 20130107
  Transmission Date: 20141002
  Serious: No
  Sender: FDA-Public Use
  Company Number: PHEH2012US004484

PATIENT
  Age: 43 Year
  Sex: Female

DRUGS (1)
  1. GILENYA [Suspect]
     Indication: MULTIPLE SCLEROSIS
     Dosage: 0.5 MG, ORAL , QOD
     Route: 048
     Dates: start: 20110927

REACTIONS (3)
  - Heart rate decreased [None]
  - Inappropriate schedule of drug administration [None]
  - White blood cell count decreased [None]
